FAERS Safety Report 15497029 (Version 2)
Quarter: 2018Q4

REPORT INFORMATION
  Report Type: Spontaneous
  Country: US (occurrence: US)
  Receive Date: 20181015
  Receipt Date: 20181017
  Transmission Date: 20190205
  Serious: Yes (Other)
  Sender: FDA-Public Use
  Company Number: US-ROCHE-2199328

PATIENT
  Sex: Female

DRUGS (1)
  1. ACTEMRA [Suspect]
     Active Substance: TOCILIZUMAB
     Indication: RHEUMATOID ARTHRITIS
     Dosage: PRESENT
     Route: 058
     Dates: start: 201806

REACTIONS (3)
  - Colitis ulcerative [Unknown]
  - Injection site swelling [Unknown]
  - Injection site pruritus [Unknown]
